FAERS Safety Report 4959169-2 (Version None)
Quarter: 2006Q1

REPORT INFORMATION
  Report Type: 
  Country: None (occurrence: None)
  Receive Date: 20060330
  Receipt Date: 20060330
  Transmission Date: 20060701
  Serious: Yes (Life-Threatening)
  Sender: FDA-Public Use
  Company Number: None

PATIENT
  Age: 44 Year

DRUGS (4)
  1. ENBREL [Suspect]
     Indication: PSORIASIS
     Dosage: 50 MG TWICE WEEKLY SQ
     Route: 058
     Dates: start: 20050630, end: 20060315
  2. ENBREL [Suspect]
     Indication: PSORIATIC ARTHROPATHY
     Dosage: 50 MG TWICE WEEKLY SQ
     Route: 058
     Dates: start: 20050630, end: 20060315
  3. ENBREL [Suspect]
     Indication: PSORIASIS
     Dosage: 50 MG TWICE WEEKLY SQ
     Route: 058
     Dates: start: 20050630, end: 20060315
  4. ENBREL [Suspect]
     Indication: PSORIATIC ARTHROPATHY
     Dosage: 50 MG TWICE WEEKLY SQ
     Route: 058
     Dates: start: 20050630, end: 20060315

REACTIONS (1)
  - HODGKIN'S DISEASE [None]
